FAERS Safety Report 16717112 (Version 1)
Quarter: 2019Q3

REPORT INFORMATION
  Report Type: Spontaneous
  Country: US (occurrence: US)
  Receive Date: 20190819
  Receipt Date: 20190819
  Transmission Date: 20191005
  Serious: No
  Sender: FDA-Public Use
  Company Number: US-MYLANLABS-2019M1074023

PATIENT
  Age: 85 Year
  Sex: Female

DRUGS (1)
  1. LIDOCAINE PATCH [Suspect]
     Active Substance: LIDOCAINE
     Indication: POST HERPETIC NEURALGIA
     Dosage: OFF AND ON FOR A PERIOD OF TWO WEEKS
     Route: 003
     Dates: start: 20190719, end: 2019

REACTIONS (4)
  - Application site erythema [Recovering/Resolving]
  - Rash macular [Recovering/Resolving]
  - Application site irritation [Recovering/Resolving]
  - Drug ineffective [Recovered/Resolved]

NARRATIVE: CASE EVENT DATE: 2019
